FAERS Safety Report 7883548-7 (Version None)
Quarter: 2011Q4

REPORT INFORMATION
  Report Type: 
  Country: None (occurrence: None)
  Receive Date: 20111102
  Receipt Date: 20111018
  Transmission Date: 20120403
  Serious: Yes (Hospitalization)
  Sender: FDA-Public Use
  Company Number: US-ELI_LILLY_AND_COMPANY-US201012004175

PATIENT
  Sex: Female
  Weight: 60 kg

DRUGS (2)
  1. FORTEO [Suspect]
     Indication: OSTEOPOROSIS
     Dosage: 20 UG, DAILY (1/D)
     Route: 058
     Dates: start: 20100901
  2. FORTEO [Suspect]
     Dosage: 20 UG, DAILY (1/D)
     Route: 058

REACTIONS (18)
  - BALANCE DISORDER [None]
  - BACK PAIN [None]
  - BACK DISORDER [None]
  - DRUG DOSE OMISSION [None]
  - GAIT DISTURBANCE [None]
  - DYSSTASIA [None]
  - HYPOKINESIA [None]
  - BLOOD CALCIUM INCREASED [None]
  - HYPERSOMNIA [None]
  - ARTHRALGIA [None]
  - INTERVERTEBRAL DISC CALCIFICATION [None]
  - CONFUSIONAL STATE [None]
  - SPINAL COLUMN STENOSIS [None]
  - PAIN IN EXTREMITY [None]
  - PAIN [None]
  - SURGERY [None]
  - FATIGUE [None]
  - VITAMIN B12 INCREASED [None]
